FAERS Safety Report 7939695-4 (Version None)
Quarter: 2011Q4

REPORT INFORMATION
  Report Type: 
  Country: None (occurrence: None)
  Receive Date: 20111125
  Receipt Date: 20111117
  Transmission Date: 20120403
  Serious: Yes (Other)
  Sender: FDA-Public Use
  Company Number: PHHY2011US16917

PATIENT
  Sex: Female

DRUGS (4)
  1. GILENYA [Suspect]
     Indication: MULTIPLE SCLEROSIS RELAPSE
     Dosage: 0.5 MG, DAILY
     Route: 048
     Dates: start: 20110228
  2. NAPROXEN [Concomitant]
     Dosage: UNK UKN, UNK
  3. METHIMAZOLE [Concomitant]
     Dosage: UNK UKN, UNK
  4. FLEXERIL [Concomitant]
     Dosage: UNK UKN, UNK

REACTIONS (7)
  - WEIGHT INCREASED [None]
  - BLOOD PRESSURE INCREASED [None]
  - OROPHARYNGEAL PAIN [None]
  - BALANCE DISORDER [None]
  - HEART RATE INCREASED [None]
  - EYE SWELLING [None]
  - RHINORRHOEA [None]
